FAERS Safety Report 4338687-4 (Version None)
Quarter: 2004Q2

REPORT INFORMATION
  Report Type: 
  Country: None (occurrence: None)
  Receive Date: 20040409
  Receipt Date: 20040324
  Transmission Date: 20050107
  Serious: Yes (Hospitalization)
  Sender: FDA-Public Use
  Company Number: 2004-00100FE

PATIENT
  Age: 55 Year
  Sex: Male

DRUGS (3)
  1. PENTASA [Suspect]
     Indication: COLITIS ULCERATIVE
     Dosage: 2250 MG ORALLY
     Route: 048
     Dates: start: 20010611, end: 20040131
  2. PENTASA [Suspect]
     Indication: COLITIS ULCERATIVE
     Dosage: 1 G PER RECTAL
     Route: 054
     Dates: start: 20040116, end: 20040131
  3. PREDNISOLONE [Concomitant]

REACTIONS (1)
  - EOSINOPHILIC PNEUMONIA [None]
